FAERS Safety Report 4985045-5 (Version None)
Quarter: 2006Q2

REPORT INFORMATION
  Report Type: 
  Country: None (occurrence: None)
  Receive Date: 20060421
  Receipt Date: 20060410
  Transmission Date: 20061013
  Serious: Yes (Death, Life-Threatening, Other)
  Sender: FDA-Public Use
  Company Number: T200600189

PATIENT
  Age: 5 Month
  Sex: Female

DRUGS (1)
  1. METHADONE HCL [Suspect]
     Dosage: 1/2 SPOON; ORAL
     Route: 048

REACTIONS (11)
  - CIRCULATORY COLLAPSE [None]
  - COMA [None]
  - CONVULSION [None]
  - DRUG WITHDRAWAL SYNDROME [None]
  - HAEMODYNAMIC INSTABILITY [None]
  - HYPOTENSION [None]
  - INTRACRANIAL PRESSURE INCREASED [None]
  - MIOSIS [None]
  - OVERDOSE [None]
  - RESPIRATORY DEPRESSION [None]
  - STUPOR [None]
